FAERS Safety Report 5598231-0 (Version None)
Quarter: 2008Q1

REPORT INFORMATION
  Report Type: 
  Country: None (occurrence: None)
  Receive Date: 20080122
  Receipt Date: 20080115
  Transmission Date: 20080703
  Serious: Yes (Hospitalization)
  Sender: FDA-Public Use
  Company Number: HQWYE144107FEB05

PATIENT
  Sex: Male

DRUGS (5)
  1. RAPAMUNE [Suspect]
     Indication: PROPHYLAXIS AGAINST TRANSPLANT REJECTION
     Route: 048
     Dates: start: 20050117, end: 20050201
  2. RAPAMUNE [Suspect]
     Dosage: UNSPECIFIED
     Route: 048
     Dates: start: 20050201
  3. PREDNISONE [Suspect]
     Indication: PROPHYLAXIS AGAINST TRANSPLANT REJECTION
     Dosage: UNSPECIFIED
     Route: 048
  4. ZENAPAX [Suspect]
     Indication: PROPHYLAXIS AGAINST TRANSPLANT REJECTION
     Dosage: UNSPECIFIED
     Route: 042
  5. MYCOPHENOLATE MOFETIL [Suspect]
     Indication: PROPHYLAXIS AGAINST TRANSPLANT REJECTION
     Dosage: UNSPECIFIED
     Route: 048

REACTIONS (2)
  - BLADDER DISORDER [None]
  - FLUID OVERLOAD [None]
